FAERS Safety Report 4399526-9 (Version None)
Quarter: 2004Q3

REPORT INFORMATION
  Report Type: 
  Country: None (occurrence: None)
  Receive Date: 20040716
  Receipt Date: 20040712
  Transmission Date: 20050211
  Serious: Yes (Other)
  Sender: FDA-Public Use
  Company Number: US-GLAXOSMITHKLINE-A0517817A

PATIENT
  Age: 17 Year
  Sex: Female

DRUGS (1)
  1. PAXIL [Suspect]
     Indication: DEPRESSION
     Dosage: 5MG UNKNOWN
     Route: 048
     Dates: start: 20020926

REACTIONS (1)
  - SUICIDE ATTEMPT [None]
